FAERS Safety Report 6402092-7 (Version None)
Quarter: 2009Q4

REPORT INFORMATION
  Report Type: 
  Country: None (occurrence: None)
  Receive Date: 20091015
  Receipt Date: 20090824
  Transmission Date: 20100525
  Serious: Yes (Other)
  Sender: FDA-Public Use
  Company Number: US-ASTRAZENECA-2009SE18035

PATIENT
  Age: 24163 Day
  Sex: Male
  Weight: 80.7 kg

DRUGS (9)
  1. CRESTOR [Suspect]
     Route: 048
  2. NIASPAN [Suspect]
     Indication: LOW DENSITY LIPOPROTEIN INCREASED
     Dates: start: 20090625, end: 20090704
  3. ATORVASTATIN [Concomitant]
     Indication: BLOOD CHOLESTEROL INCREASED
  4. LISINOPRIL [Concomitant]
     Indication: POSTOPERATIVE CARE
  5. AMLODIPINE [Concomitant]
     Indication: HYPERTENSION
  6. CLOPIDOGREL [Concomitant]
     Indication: CORONARY ARTERIAL STENT INSERTION
  7. HYDROCHLORATHIAZIDE [Concomitant]
     Indication: HYPERTENSION
  8. ACETYLSALICYLIC ACID [Concomitant]
     Indication: CARDIAC DISORDER
  9. GLUCOSAMINE [Concomitant]
     Indication: ARTHROPATHY

REACTIONS (4)
  - ARTERIAL RUPTURE [None]
  - EPISTAXIS [None]
  - HYPERSENSITIVITY [None]
  - VASCULAR CAUTERISATION [None]
